FAERS Safety Report 7886911-3 (Version None)
Quarter: 2011Q4

REPORT INFORMATION
  Report Type: 
  Country: None (occurrence: None)
  Receive Date: 20111102
  Receipt Date: 20110712
  Transmission Date: 20120403
  Serious: No
  Sender: FDA-Public Use
  Company Number: US-AMGEN-USASP2011035269

PATIENT
  Age: 61 Year

DRUGS (9)
  1. SYNTHROID [Concomitant]
  2. VITAMIN D [Concomitant]
  3. ENBREL [Suspect]
     Indication: PRODUCT USED FOR UNKNOWN INDICATION
     Dosage: 50 MG, QWK
     Route: 058
  4. POTASSIUM [Concomitant]
  5. ATENOLOL [Concomitant]
     Dosage: 50 MG, UNK
  6. TRAMADOL HCL [Concomitant]
     Dosage: 100 MG, UNK
  7. CALCIUM +D [Concomitant]
  8. QUINAPRIL [Concomitant]
     Dosage: 40 MG, UNK
  9. HYDROCHLOROTH [Concomitant]
     Dosage: 25 MG, UNK

REACTIONS (1)
  - BRONCHITIS [None]
